FAERS Safety Report 25389749 (Version 1)
Quarter: 2025Q2

REPORT INFORMATION
  Report Type: Spontaneous
  Country: SK (occurrence: SK)
  Receive Date: 20250603
  Receipt Date: 20250603
  Transmission Date: 20250717
  Serious: Yes (Other)
  Sender: ALK-ABELLO
  Company Number: SK-ALKABELLO A/S-2025AA001196

PATIENT

DRUGS (1)
  1. ACARIZAX [Suspect]
     Active Substance: DERMATOPHAGOIDES FARINAE\DERMATOPHAGOIDES PTERONYSSINUS
     Indication: Product used for unknown indication
     Route: 060
     Dates: start: 20250219, end: 20250219

REACTIONS (5)
  - Presyncope [Unknown]
  - Oral pruritus [Unknown]
  - Nausea [Unknown]
  - Headache [Unknown]
  - Salivary hypersecretion [Unknown]

NARRATIVE: CASE EVENT DATE: 20250219
